FAERS Safety Report 6093962-0 (Version None)
Quarter: 2009Q1

REPORT INFORMATION
  Report Type: 
  Country: None (occurrence: None)
  Receive Date: 20090226
  Receipt Date: 20090220
  Transmission Date: 20090719
  Serious: Yes (Other)
  Sender: FDA-Public Use
  Company Number: A0770324A

PATIENT
  Age: 57 Year
  Sex: Female
  Weight: 69.1 kg

DRUGS (1)
  1. AVANDIA [Suspect]
     Indication: DIABETES MELLITUS
     Dosage: 4MG PER DAY
     Route: 048
     Dates: start: 19990101, end: 20000101

REACTIONS (2)
  - HEART RATE IRREGULAR [None]
  - SILENT MYOCARDIAL INFARCTION [None]
